FAERS Safety Report 10600603 (Version 1)
Quarter: 2014Q4

REPORT INFORMATION
  Report Type: Spontaneous
  Country: US (occurrence: None)
  Receive Date: 20141121
  Receipt Date: 20141121
  Transmission Date: 20150529
  Serious: Yes (Other)
  Sender: FDA-Public Use
  Company Number: None

PATIENT
  Age: 38 Year
  Sex: Female

DRUGS (1)
  1. XELODA [Suspect]
     Active Substance: CAPECITABINE
     Indication: BREAST CANCER
     Dosage: STRENGTH: 500MG, FREQUENCY: BID, ROUTE: ORAL 047
     Route: 048
     Dates: start: 201407, end: 20141109

REACTIONS (3)
  - Diarrhoea [None]
  - Pain in extremity [None]
  - Erythema [None]

NARRATIVE: CASE EVENT DATE: 20141116
